FAERS Safety Report 9559708 (Version 2)
Quarter: 2013Q4

REPORT INFORMATION
  Report Type: Report from Study
  Country: US (occurrence: US)
  Receive Date: 20130927
  Receipt Date: 20131025
  Transmission Date: 20140711
  Serious: Yes (Other)
  Sender: FDA-Public Use
  Company Number: PHEH2013US019741

PATIENT
  Sex: Male
  Weight: 61.22 kg

DRUGS (10)
  1. TASIGNA [Suspect]
     Indication: CHRONIC MYELOID LEUKAEMIA
     Dosage: 2 DF, BID
     Route: 048
  2. LANOXIN [Concomitant]
     Dosage: 0.25 MG, UNK
  3. TOPROL [Concomitant]
     Dosage: 25 MG, UNK
  4. ASPIRIN [Concomitant]
     Dosage: 81 MG, UNK
  5. OMEGA 3 [Concomitant]
     Dosage: 1000 MG, UNK
  6. CRESTOR [Concomitant]
     Dosage: 10 MG, UNK
  7. PROAIR HFA [Concomitant]
  8. FLOMAX ^BOEHRINGER INGELHEIM^ [Concomitant]
     Dosage: 0.4 MG, UNK
  9. VIT D [Concomitant]
     Dosage: 1000 U, UNK
  10. ROBITUSSIN COLD [Concomitant]

REACTIONS (2)
  - Chronic myeloid leukaemia [Unknown]
  - Malignant neoplasm progression [Unknown]
